FAERS Safety Report 4326330-X (Version None)
Quarter: 2004Q1

REPORT INFORMATION
  Report Type: 
  Country: None (occurrence: None)
  Receive Date: 20040323
  Receipt Date: 20040309
  Transmission Date: 20041129
  Serious: Yes (Other)
  Sender: FDA-Public Use
  Company Number: US-JNJFOC-20040102977

PATIENT
  Age: 56 Year
  Sex: Female
  Weight: 82.1011 kg

DRUGS (9)
  1. REMICADE [Suspect]
     Indication: RHEUMATOID ARTHRITIS
     Dosage: 400 MG, INTRAVENOUS
     Route: 042
     Dates: start: 20031223
  2. REMICADE [Suspect]
     Dosage: 300 MG, INTRAVENOUS; INTRAVENOUS
     Route: 042
     Dates: start: 20030529
  3. REMICADE [Suspect]
     Dosage: 300 MG, INTRAVENOUS; INTRAVENOUS
     Route: 042
     Dates: start: 20031230
  4. REMICADE [Suspect]
  5. SOLU-CORTEF [Concomitant]
  6. BENADRYL [Concomitant]
  7. FOSAMAX [Concomitant]
  8. RELAFEN [Concomitant]
  9. TOPROL-XL [Concomitant]

REACTIONS (10)
  - CHEST PAIN [None]
  - DYSPNOEA [None]
  - FLUSHING [None]
  - HYPERTENSION [None]
  - HYPOTENSION [None]
  - INFUSION RELATED REACTION [None]
  - LOSS OF CONSCIOUSNESS [None]
  - MUSCLE SPASMS [None]
  - OXYGEN SATURATION DECREASED [None]
  - PRURITUS [None]
